FAERS Safety Report 4668019-3 (Version None)
Quarter: 2005Q2

REPORT INFORMATION
  Report Type: 
  Country: None (occurrence: None)
  Receive Date: 20050520
  Receipt Date: 20050513
  Transmission Date: 20051028
  Serious: Yes (Hospitalization)
  Sender: FDA-Public Use
  Company Number: FR-MERCK-0505FRA00055

PATIENT
  Age: 36 Year
  Sex: Male

DRUGS (4)
  1. CRIXIVAN [Suspect]
     Indication: HIV INFECTION
     Route: 048
  2. DIDANOSINE [Concomitant]
     Indication: HIV INFECTION
     Route: 048
  3. ZIDOVUDINE [Concomitant]
     Indication: HIV INFECTION
     Route: 048
  4. CAFFEINE AND ERGOTAMINE TARTRATE [Suspect]
     Indication: MIGRAINE
     Route: 048
     Dates: start: 19960101, end: 19960101

REACTIONS (3)
  - DIZZINESS [None]
  - DRUG INTERACTION [None]
  - MALAISE [None]
